FAERS Safety Report 20130956 (Version 2)
Quarter: 2022Q2

REPORT INFORMATION
  Report Type: Spontaneous
  Country: US (occurrence: None)
  Receive Date: 20211130
  Receipt Date: 20220401
  Transmission Date: 20220720
  Serious: Yes (Other)
  Sender: FDA-Public Use
  Company Number: US-FRESENIUS KABI-FK202113224

PATIENT
  Age: 71 Year
  Sex: Male
  Weight: 81.9 kg

DRUGS (21)
  1. FLUDARABINE [Suspect]
     Active Substance: FLUDARABINE PHOSPHATE
     Indication: Chronic lymphocytic leukaemia
     Dosage: 6 CYCLES, NOT PROVIDED, UNK
     Route: 065
     Dates: start: 2007, end: 200802
  2. FLUDARABINE [Suspect]
     Active Substance: FLUDARABINE PHOSPHATE
     Dosage: 30 MG/M2, 1 IN 1 D, IV
     Route: 042
     Dates: start: 20210121, end: 20210123
  3. CYCLOPHOSPHAMIDE [Suspect]
     Active Substance: CYCLOPHOSPHAMIDE
     Indication: Chronic lymphocytic leukaemia
     Dosage: 6 CYCLES, NOT PROVIDED, UNK
     Route: 065
     Dates: start: 2007, end: 200802
  4. CYCLOPHOSPHAMIDE [Suspect]
     Active Substance: CYCLOPHOSPHAMIDE
     Dosage: 300 MG/M2, 1 IN 1 D, IV
     Route: 042
     Dates: start: 20210121, end: 20210123
  5. LISOCABTAGENE MARALEUCEL [Suspect]
     Active Substance: LISOCABTAGENE MARALEUCEL
     Indication: Chronic lymphocytic leukaemia
     Dosage: 100 X 10^6 CAR + T CELLS, SINGLE, IV?NDA: BLA 125714
     Route: 042
     Dates: start: 20210126, end: 20210126
  6. ACETAMINOPHEN [Concomitant]
     Active Substance: ACETAMINOPHEN
     Indication: Product used for unknown indication
     Dosage: 650 MILLIGRAM, AS NEEDED, PO
     Route: 048
  7. AMLODIPINE [Concomitant]
     Active Substance: AMLODIPINE BESYLATE
     Indication: Product used for unknown indication
     Dosage: START AND END DATE WAS UNKNOWN
     Route: 048
  8. DIPHENHYDRAMINE HYDROCHLORIDE [Concomitant]
     Active Substance: DIPHENHYDRAMINE HYDROCHLORIDE
     Indication: Product used for unknown indication
     Dosage: PRIOR TO BLOOD PRODUCTS, PO?START AND END DATE WAS UNKNOWN
     Route: 048
  9. DOXYLAMINE [Concomitant]
     Active Substance: DOXYLAMINE
     Indication: Cough
     Dosage: 15- 6 . 25-325 MILLIGRAM, AS NEEDED, PO?START AND END DATE WAS UNKNOWN
     Route: 048
  10. DOXYLAMINE [Concomitant]
     Active Substance: DOXYLAMINE
     Indication: Rhinorrhoea
  11. LORATADINE [Concomitant]
     Active Substance: LORATADINE
     Indication: Product used for unknown indication
     Dosage: 10 MILLIGRAM, AS NEEDED, PO?START AND END DATE WAS UNKNOWN
     Route: 048
  12. LOSARTAN [Concomitant]
     Active Substance: LOSARTAN
     Indication: Product used for unknown indication
     Dosage: 100 MILLIGRAM, 1 IN 1 D , PO?START AND END DATE WAS UNKNOWN
     Route: 048
  13. PENTAMIDINE [Concomitant]
     Active Substance: PENTAMIDINE
     Indication: Product used for unknown indication
     Dosage: 10 MILLIGRAM, 1 IN 1 M , UNK?START AND END DATE WAS UNKNOWN
     Route: 065
  14. RIVAROXABAN [Concomitant]
     Active Substance: RIVAROXABAN
     Indication: Product used for unknown indication
     Dosage: 20 MILLIGRAM, 1 IN 1 D , PO?START AND END DATE WAS UNKNOWN
     Route: 048
  15. TAMSULOSIN [Concomitant]
     Active Substance: TAMSULOSIN
     Indication: Product used for unknown indication
     Dosage: 0.4 MILLIGRAM, NIGHTLY, PO?START AND END DATE WAS UNKNOWN
     Route: 048
  16. TRIAMCINOLONE ACETONIDE [Concomitant]
     Active Substance: TRIAMCINOLONE ACETONIDE
     Indication: Product used for unknown indication
     Dosage: .1 PERCENT, 2 IN 1 D, TOP?START AND END DATE WAS UNKNOWN
     Route: 061
  17. VALACYCLOVIR HYDROCHLORIDE [Concomitant]
     Active Substance: VALACYCLOVIR HYDROCHLORIDE
     Indication: Product used for unknown indication
     Dosage: 1000 MILLIGRAM, 2 IN 1 D , PO?START AND END DATE WAS UNKNOWN
     Route: 048
  18. VITAMIN D NOS [Concomitant]
     Active Substance: VITAMIN D NOS
     Indication: Product used for unknown indication
     Dosage: 2000 IU, 1 IN 1 D , PO?START AND END DATE WAS UNKNOWN
     Route: 048
  19. VITAMIN D NOS [Concomitant]
     Active Substance: VITAMIN D NOS
     Indication: Product used for unknown indication
  20. TOCILIZUMAB [Concomitant]
     Active Substance: TOCILIZUMAB
     Indication: Cytokine release syndrome
     Dosage: NOT PROVIDED, UNK?END DATE WAS UNKNOWN
     Route: 065
     Dates: start: 2021
  21. TOCILIZUMAB [Concomitant]
     Active Substance: TOCILIZUMAB
     Indication: Product used for unknown indication

REACTIONS (1)
  - Myelodysplastic syndrome [Recovering/Resolving]

NARRATIVE: CASE EVENT DATE: 20210722
